FAERS Safety Report 16231635 (Version 1)
Quarter: 2019Q2

REPORT INFORMATION
  Report Type: Spontaneous
  Country: US (occurrence: US)
  Receive Date: 20190424
  Receipt Date: 20190424
  Transmission Date: 20190711
  Serious: Yes (Other)
  Sender: FDA-Public Use
  Company Number: US-BION-007958

PATIENT
  Age: 82 Year
  Sex: Female
  Weight: 68 kg

DRUGS (5)
  1. HEMAX [Concomitant]
  2. ASPIRIN BAYER [Suspect]
     Active Substance: ASPIRIN
     Indication: PROPHYLAXIS
     Dosage: ALSO RECEIVED 325 MG
     Route: 048
  3. IRON [Concomitant]
     Active Substance: IRON
  4. ALEVE [Suspect]
     Active Substance: NAPROXEN SODIUM
     Indication: ARTHRALGIA
     Dosage: 1 EVERY 12 HOURS
     Route: 048
  5. ERGOCALCIFEROL. [Concomitant]
     Active Substance: ERGOCALCIFEROL

REACTIONS (4)
  - Haemoglobin decreased [Recovering/Resolving]
  - Rectal haemorrhage [Recovered/Resolved]
  - Incorrect product administration duration [Not Recovered/Not Resolved]
  - Fatigue [Unknown]
